FAERS Safety Report 6611004-2 (Version None)
Quarter: 2010Q1

REPORT INFORMATION
  Report Type: 
  Country: None (occurrence: None)
  Receive Date: 20100222
  Receipt Date: 20100208
  Transmission Date: 20100710
  Serious: Yes (Other)
  Sender: FDA-Public Use
  Company Number: 1000011727

PATIENT
  Age: 74 Year
  Sex: Female

DRUGS (5)
  1. CARBAMAZEPINE [Suspect]
     Indication: PAIN
  2. MEXILETINE [Suspect]
     Indication: PAIN
  3. GEFITNIB [Suspect]
     Indication: LUNG ADENOCARCINOMA
  4. CARBOPLATIN [Concomitant]
  5. PACLITAXEL [Concomitant]

REACTIONS (7)
  - CYTOMEGALOVIRUS INFECTION [None]
  - DIARRHOEA [None]
  - DISEASE COMPLICATION [None]
  - DRUG RASH WITH EOSINOPHILIA AND SYSTEMIC SYMPTOMS [None]
  - DRUG TOLERANCE DECREASED [None]
  - HEPATIC FUNCTION ABNORMAL [None]
  - INTERSTITIAL LUNG DISEASE [None]
